FAERS Safety Report 8173842-7 (Version None)
Quarter: 2012Q1

REPORT INFORMATION
  Report Type: 
  Country: None (occurrence: None)
  Receive Date: 20120229
  Receipt Date: 20120216
  Transmission Date: 20120608
  Serious: Yes (Hospitalization, Other)
  Sender: FDA-Public Use
  Company Number: US-ELI_LILLY_AND_COMPANY-US201202005272

PATIENT
  Age: 74 Year
  Sex: Female

DRUGS (7)
  1. CYMBALTA [Suspect]
     Dosage: 180 MG, QD
  2. POTASSIUM CHLORIDE [Concomitant]
  3. SODIUM CHLORIDE [Concomitant]
  4. CYMBALTA [Suspect]
     Dosage: 60 MG, QD
     Dates: start: 20120216
  5. ANTIHYPERTENSIVES [Concomitant]
  6. CYMBALTA [Suspect]
     Indication: DEPRESSION
     Dosage: 120 MG, QD
     Dates: start: 20060101
  7. MAGNESIUM [Concomitant]

REACTIONS (5)
  - DRUG EFFECT DECREASED [None]
  - LARGE INTESTINE PERFORATION [None]
  - OVERDOSE [None]
  - WOUND COMPLICATION [None]
  - ADVERSE EVENT [None]
